FAERS Safety Report 23750232 (Version 1)
Quarter: 2024Q2

REPORT INFORMATION
  Report Type: Spontaneous
  Country: US (occurrence: US)
  Receive Date: 20240417
  Receipt Date: 20240417
  Transmission Date: 20240716
  Serious: Yes (Other)
  Sender: FDA-Public Use
  Company Number: US-ENDO PHARMACEUTICALS INC-2024-001732

PATIENT
  Age: 42 Year
  Sex: Male

DRUGS (10)
  1. EDEX [Suspect]
     Active Substance: ALPROSTADIL
     Indication: Erectile dysfunction
     Dosage: 5 UNKNOWN, UNKNOWN (AT PHYSICIAN?S OFFICE)
     Route: 051
     Dates: start: 202403
  2. EDEX [Suspect]
     Active Substance: ALPROSTADIL
     Indication: Erectile dysfunction
     Dosage: 5 UNKNOWN, UNKNOWN (AT PHYSICIAN?S OFFICE)
     Route: 051
     Dates: start: 202403
  3. EDEX [Suspect]
     Active Substance: ALPROSTADIL
     Indication: Erectile dysfunction
     Dosage: 5 UNKNOWN, UNKNOWN (AT PHYSICIAN?S OFFICE)
     Route: 051
     Dates: start: 202403
  4. EDEX [Suspect]
     Active Substance: ALPROSTADIL
     Indication: Erectile dysfunction
     Dosage: 5 UNKNOWN, UNKNOWN (AT PHYSICIAN?S OFFICE)
     Route: 051
     Dates: start: 202403
  5. EDEX [Suspect]
     Active Substance: ALPROSTADIL
     Indication: Erectile dysfunction
     Dosage: 5 UNKNOWN, UNKNOWN (AT PHYSICIAN?S OFFICE)
     Route: 051
     Dates: start: 202403
  6. EDEX [Suspect]
     Active Substance: ALPROSTADIL
     Dosage: 5 UNKNOWN, UNKNOWN (AT HOME)
     Route: 051
     Dates: start: 202403
  7. EDEX [Suspect]
     Active Substance: ALPROSTADIL
     Dosage: 5 UNKNOWN, UNKNOWN (AT HOME)
     Route: 051
     Dates: start: 202403
  8. EDEX [Suspect]
     Active Substance: ALPROSTADIL
     Dosage: 5 UNKNOWN, UNKNOWN (AT HOME)
     Route: 051
     Dates: start: 202403
  9. EDEX [Suspect]
     Active Substance: ALPROSTADIL
     Dosage: 5 UNKNOWN, UNKNOWN (AT HOME)
     Route: 051
     Dates: start: 202403
  10. EDEX [Suspect]
     Active Substance: ALPROSTADIL
     Dosage: 5 UNKNOWN, UNKNOWN (AT HOME)
     Route: 051
     Dates: start: 202403

REACTIONS (3)
  - Central serous chorioretinopathy [Unknown]
  - Condition aggravated [Unknown]
  - Intentional product use issue [Unknown]

NARRATIVE: CASE EVENT DATE: 20240301
